FAERS Safety Report 8905531 (Version 4)
Quarter: 2013Q1

REPORT INFORMATION
  Report Type: Spontaneous
  Country: JP (occurrence: JP)
  Receive Date: 20121111
  Receipt Date: 20130212
  Transmission Date: 20140127
  Serious: Yes (Hospitalization)
  Sender: FDA-Public Use
  Company Number: PHHY2012JP097145

PATIENT
  Age: 71 Year
  Sex: Male
  Weight: 54 kg

DRUGS (11)
  1. VOLTAREN [Suspect]
     Indication: BACK PAIN
     Dosage: 25 MG, DAILY
     Route: 048
  2. DIOVAN [Concomitant]
     Indication: HYPERTENSION
     Dosage: 40 MG, UNK
     Route: 048
  3. DIART [Concomitant]
     Indication: OEDEMA
     Dosage: 60 MG, UNK
     Route: 048
  4. ZYLORIC [Concomitant]
     Indication: HYPERURICAEMIA
     Dosage: 100 MG, UNK
     Route: 048
  5. NORVASC [Concomitant]
     Dosage: UNK UKN, UNK
  6. MEVALOTIN [Concomitant]
     Indication: HYPERLIPIDAEMIA
     Dosage: 10 MG, UNK
     Route: 048
  7. OPALMON [Concomitant]
     Indication: BACK PAIN
     Dosage: 15 UG, UNK
     Route: 048
  8. METHYCOBAL [Concomitant]
     Indication: HYPOAESTHESIA
     Dosage: 1500 UG, UNK
     Route: 048
  9. STEROIDS NOS [Concomitant]
     Dosage: 40 MG, DAILY
     Dates: start: 20121113
  10. PREDONINE [Concomitant]
     Dosage: 30 MG, DAILY
     Dates: start: 20121217, end: 20130113
  11. PREDONINE [Concomitant]
     Dosage: 25 MG, DAILY
     Dates: start: 20130125

REACTIONS (7)
  - Nephrotic syndrome [Recovering/Resolving]
  - Glomerulonephritis membranous [Unknown]
  - Blood urea increased [Unknown]
  - Blood alkaline phosphatase increased [Unknown]
  - Alanine aminotransferase increased [Unknown]
  - Haemoglobin decreased [Unknown]
  - Haematocrit decreased [Unknown]
